FAERS Safety Report 25899334 (Version 3)
Quarter: 2025Q4

REPORT INFORMATION
  Report Type: Spontaneous
  Country: US (occurrence: US)
  Receive Date: 20251009
  Receipt Date: 20251031
  Transmission Date: 20260117
  Serious: Yes (Other)
  Sender: LUPIN
  Company Number: US-LUPIN PHARMACEUTICALS INC.-2025-08966

PATIENT
  Age: 23 Year
  Weight: 45.351 kg

DRUGS (1)
  1. LEVALBUTEROL TARTRATE [Suspect]
     Active Substance: LEVALBUTEROL TARTRATE
     Indication: Asthma
     Dosage: Q4H (2 PUFFS EVERY 4 HOURS)

REACTIONS (3)
  - Seizure [Unknown]
  - Dyspnoea [Unknown]
  - Device delivery system issue [Unknown]
